FAERS Safety Report 4620818-X (Version None)
Quarter: 2005Q1

REPORT INFORMATION
  Report Type: 
  Country: None (occurrence: None)
  Receive Date: 20050315
  Receipt Date: 20050128
  Transmission Date: 20050727
  Serious: No
  Sender: FDA-Public Use
  Company Number: US-YAMANOUCHI-YPA20050049

PATIENT
  Age: 79 Year
  Sex: Female
  Weight: 51.7101 kg

DRUGS (3)
  1. VESICARE [Suspect]
     Indication: HYPERTONIC BLADDER
     Dosage: 5 MG QD PO
     Route: 048
     Dates: start: 20050124
  2. ZYRTEC-D 12 HOUR [Concomitant]
  3. FOSAMAX [Concomitant]

REACTIONS (1)
  - CONSTIPATION [None]
